FAERS Safety Report 7255302-0 (Version None)
Quarter: 2011Q1

REPORT INFORMATION
  Report Type: 
  Country: None (occurrence: None)
  Receive Date: 20110129
  Receipt Date: 20100309
  Transmission Date: 20110831
  Serious: No
  Sender: FDA-Public Use
  Company Number: US-ABBOTT-10P-163-0632127-00

PATIENT
  Sex: Male
  Weight: 74.91 kg

DRUGS (2)
  1. SUBOXONE [Concomitant]
     Indication: DRUG DEPENDENCE
     Dates: start: 20090901
  2. HUMIRA [Suspect]
     Indication: PSORIATIC ARTHROPATHY
     Dates: start: 20090901, end: 20100201

REACTIONS (3)
  - INCORRECT DRUG ADMINISTRATION DURATION [None]
  - ALOPECIA [None]
  - PSORIASIS [None]
